FAERS Safety Report 9865396 (Version 2)
Quarter: 2014Q1

REPORT INFORMATION
  Report Type: Spontaneous
  Country: US (occurrence: US)
  Receive Date: 20140203
  Receipt Date: 20140203
  Transmission Date: 20141002
  Serious: No
  Sender: FDA-Public Use
  Company Number: US-ALLERGAN-1302869US

PATIENT
  Age: 77 Year
  Sex: Female

DRUGS (7)
  1. RESTASIS [Suspect]
     Indication: DRY EYE
     Dosage: 2 GTT, BID
     Route: 047
     Dates: start: 201212
  2. BLOOD PRESSURE MEDICINE NOS [Concomitant]
     Indication: HYPERTENSION
     Dosage: UNK
  3. CHOLESTEROL MEDICINE NOS [Concomitant]
     Indication: BLOOD CHOLESTEROL INCREASED
     Dosage: UNK
  4. THYROID MEDICINE NOS [Concomitant]
     Indication: HYPOTHYROIDISM
     Dosage: UNK
  5. MEDICINE FOR SJOGREN^S SYNDROME NOS [Concomitant]
     Indication: SJOGREN^S SYNDROME
     Dosage: UNK
  6. FRESH COAT [Concomitant]
     Indication: EYE INFLAMMATION
     Dosage: 2 GTT, QID
     Route: 047
     Dates: start: 2010
  7. REFRESH PRODUCT NOS [Concomitant]
     Indication: DRY EYE
     Dosage: 2 GTT, Q1/2HR
     Route: 047
     Dates: start: 1998

REACTIONS (1)
  - Drug ineffective [Unknown]
